FAERS Safety Report 8372420-4 (Version None)
Quarter: 2012Q2

REPORT INFORMATION
  Report Type: 
  Country: None (occurrence: None)
  Receive Date: 20120521
  Receipt Date: 20120512
  Transmission Date: 20120825
  Serious: Yes (Other)
  Sender: FDA-Public Use
  Company Number: CA-US-EMD SERONO, INC.-7130917

PATIENT
  Sex: Female

DRUGS (2)
  1. LORAZAPAM (LORAZEPAM) [Concomitant]
     Indication: ANXIETY
     Route: 048
  2. REBIF [Suspect]
     Indication: RELAPSING-REMITTING MULTIPLE SCLEROSIS
     Route: 058
     Dates: start: 20120409, end: 20120506

REACTIONS (12)
  - GASTROINTESTINAL INFECTION [None]
  - SUICIDAL IDEATION [None]
  - VISUAL ACUITY REDUCED [None]
  - LIVER FUNCTION TEST ABNORMAL [None]
  - WHITE BLOOD CELL COUNT DECREASED [None]
  - PYREXIA [None]
  - BLOOD PRESSURE FLUCTUATION [None]
  - CHEST PAIN [None]
  - MALAISE [None]
  - COUGH [None]
  - DIZZINESS [None]
  - ANXIETY [None]
